FAERS Safety Report 24354764 (Version 1)
Quarter: 2024Q3

REPORT INFORMATION
  Report Type: Spontaneous
  Country: RS (occurrence: RS)
  Receive Date: 20240923
  Receipt Date: 20240923
  Transmission Date: 20241017
  Serious: Yes (Other)
  Sender: MERCK
  Company Number: RS-009507513-2409SRB007121

PATIENT
  Age: 71 Year
  Sex: Female

DRUGS (6)
  1. PEMBROLIZUMAB [Suspect]
     Active Substance: PEMBROLIZUMAB
     Indication: Non-small cell lung cancer
     Dosage: UNK
     Dates: start: 2024
  2. PEMBROLIZUMAB [Suspect]
     Active Substance: PEMBROLIZUMAB
     Indication: PD-L1 positive cancer
  3. PEMETREXED [Suspect]
     Active Substance: PEMETREXED
     Indication: Non-small cell lung cancer
     Dosage: UNK
     Dates: start: 2024
  4. PEMETREXED [Suspect]
     Active Substance: PEMETREXED
     Indication: PD-L1 positive cancer
  5. PLATINUM [Suspect]
     Active Substance: PLATINUM
     Indication: Non-small cell lung cancer
     Dosage: UNK
     Dates: start: 2024
  6. PLATINUM [Suspect]
     Active Substance: PLATINUM
     Indication: PD-L1 positive cancer

REACTIONS (3)
  - Haemoglobin decreased [Recovering/Resolving]
  - Red blood cell count decreased [Recovering/Resolving]
  - Blood creatinine decreased [Unknown]

NARRATIVE: CASE EVENT DATE: 20240101
